FAERS Safety Report 13905837 (Version 1)
Quarter: 2017Q3

REPORT INFORMATION
  Report Type: Spontaneous
  Country: US (occurrence: US)
  Receive Date: 20170825
  Receipt Date: 20170825
  Transmission Date: 20171127
  Serious: No
  Sender: FDA-Public Use
  Company Number: US-GLAXOSMITHKLINE-US2017131185

PATIENT
  Sex: Female

DRUGS (2)
  1. ADVAIR DISKUS [Suspect]
     Active Substance: FLUTICASONE PROPIONATE\SALMETEROL XINAFOATE
     Indication: CHRONIC OBSTRUCTIVE PULMONARY DISEASE
     Dosage: 1 PUFF(S), UNK
     Route: 055
  2. ADVAIR DISKUS [Suspect]
     Active Substance: FLUTICASONE PROPIONATE\SALMETEROL XINAFOATE
     Indication: ASTHMA
     Dosage: 2 PUFF(S), BID
     Route: 055

REACTIONS (14)
  - Dyspnoea [Unknown]
  - Fibromyalgia [Unknown]
  - Insomnia [Unknown]
  - Joint swelling [Unknown]
  - Nasal congestion [Unknown]
  - Myalgia [Unknown]
  - Mobility decreased [Unknown]
  - Abdominal pain upper [Unknown]
  - Peripheral swelling [Unknown]
  - Overdose [Unknown]
  - Incorrect dosage administered [Unknown]
  - Chest discomfort [Unknown]
  - Stomatitis [Unknown]
  - Asthma [Unknown]
